FAERS Safety Report 12744818 (Version 1)
Quarter: 2016Q3

REPORT INFORMATION
  Report Type: Spontaneous
  Country: US (occurrence: US)
  Receive Date: 20160915
  Receipt Date: 20160915
  Transmission Date: 20161109
  Serious: No
  Sender: FDA-Public Use
  Company Number: US-ASTRAZENECA-2016SE97811

PATIENT
  Age: 46 Year
  Sex: Female
  Weight: 56.2 kg

DRUGS (2)
  1. BENADRYL [Concomitant]
     Active Substance: DIPHENHYDRAMINE HYDROCHLORIDE
     Indication: MULTIPLE ALLERGIES
     Route: 065
  2. RHINOCORT [Suspect]
     Active Substance: BUDESONIDE
     Indication: SINUS CONGESTION
     Dosage: 1 SPRAY EACH NOSTRIL ONCE
     Route: 045
     Dates: start: 20160829, end: 20160829

REACTIONS (2)
  - Abdominal discomfort [Recovered/Resolved]
  - Nausea [Recovered/Resolved]

NARRATIVE: CASE EVENT DATE: 20160829
